FAERS Safety Report 8241613-9 (Version None)
Quarter: 2012Q1

REPORT INFORMATION
  Report Type: 
  Country: None (occurrence: None)
  Receive Date: 20120328
  Receipt Date: 20120313
  Transmission Date: 20120608
  Serious: Yes (Congenital Anomaly, Other)
  Sender: FDA-Public Use
  Company Number: DE-ARROW GEN-2012-04639

PATIENT
  Sex: Male
  Weight: 3.6 kg

DRUGS (3)
  1. LAMOTRIGINE [Suspect]
     Indication: EPILEPSY
     Dosage: 700 MG DAILY
     Route: 064
     Dates: start: 20091111, end: 20100811
  2. VIMPAT [Suspect]
     Indication: EPILEPSY
     Dosage: 200 MG DAILY
     Route: 064
     Dates: start: 20091111, end: 20100811
  3. FOLIC ACID [Concomitant]
     Indication: PROPHYLAXIS OF NEURAL TUBE DEFECT
     Dosage: 5 MG, DAILY
     Route: 064

REACTIONS (3)
  - COARCTATION OF THE AORTA [None]
  - BRADYCARDIA NEONATAL [None]
  - ATRIAL SEPTAL DEFECT [None]
